FAERS Safety Report 25730973 (Version 1)
Quarter: 2025Q3

REPORT INFORMATION
  Report Type: Report from Study
  Country: US (occurrence: US)
  Receive Date: 20250827
  Receipt Date: 20250827
  Transmission Date: 20251021
  Serious: Yes (Other)
  Sender: MALLINCKRODT
  Company Number: US-MALLINCKRODT-MNK202505107

PATIENT
  Age: 71 Year
  Sex: Female

DRUGS (1)
  1. CORTICOTROPIN [Suspect]
     Active Substance: CORTICOTROPIN
     Indication: Noninfective chorioretinitis
     Route: 058
     Dates: start: 20240110

REACTIONS (3)
  - Thyroid operation [Recovering/Resolving]
  - Eye operation [Recovering/Resolving]
  - Metamorphopsia [Recovering/Resolving]

NARRATIVE: CASE EVENT DATE: 20250601
